FAERS Safety Report 10809605 (Version 1)
Quarter: 2015Q1

REPORT INFORMATION
  Report Type: Report from Study
  Country: US (occurrence: US)
  Receive Date: 20150217
  Receipt Date: 20150217
  Transmission Date: 20150721
  Serious: No
  Sender: FDA-Public Use
  Company Number: US-ABBVIE-14K-163-1231367-00

PATIENT
  Age: 72 Year
  Sex: Female

DRUGS (19)
  1. AMOXICILLIN. [Suspect]
     Active Substance: AMOXICILLIN
     Indication: PROPHYLAXIS
     Route: 065
     Dates: start: 2014
  2. MESALAMINE. [Concomitant]
     Active Substance: MESALAMINE
     Indication: COLITIS ULCERATIVE
     Dosage: TWO TABS IN MORNING, TWO IN EVENING
     Dates: start: 201401
  3. GABAPENTIN. [Concomitant]
     Active Substance: GABAPENTIN
     Indication: RESTLESS LEGS SYNDROME
     Dates: start: 201402
  4. PREDNISONE. [Suspect]
     Active Substance: PREDNISONE
     Indication: PAIN
     Dosage: FOR TWO MONTHS
     Route: 065
     Dates: start: 20140720, end: 20140920
  5. HUMIRA [Suspect]
     Active Substance: ADALIMUMAB
     Route: 065
     Dates: start: 20140416, end: 20140416
  6. HUMIRA [Suspect]
     Active Substance: ADALIMUMAB
     Route: 065
     Dates: start: 2014
  7. AMOXICILLIN. [Suspect]
     Active Substance: AMOXICILLIN
     Indication: CYSTITIS
     Route: 065
     Dates: start: 20140422, end: 20140502
  8. AZITHROMYCIN [Suspect]
     Active Substance: AZITHROMYCIN ANHYDROUS
     Indication: TOOTH ABSCESS
     Route: 065
     Dates: start: 2014, end: 201406
  9. PREDNISONE. [Suspect]
     Active Substance: PREDNISONE
     Indication: BONE DISORDER
     Dosage: TAPER OF 5 MG
     Route: 065
     Dates: end: 20140405
  10. HUMIRA [Suspect]
     Active Substance: ADALIMUMAB
     Indication: COLITIS ULCERATIVE
     Route: 065
     Dates: start: 20140402, end: 20140402
  11. HYDROXYCHLOROQUINE [Concomitant]
     Active Substance: HYDROXYCHLOROQUINE
     Indication: SJOGREN^S SYNDROME
  12. POTASSIUM CITRATE. [Concomitant]
     Active Substance: POTASSIUM CITRATE
     Indication: RENAL TUBULAR ACIDOSIS
  13. AMOXICILLIN. [Suspect]
     Active Substance: AMOXICILLIN
     Indication: TOOTH EXTRACTION
  14. ADVAIR HFA [Concomitant]
     Active Substance: FLUTICASONE PROPIONATE\SALMETEROL XINAFOATE
     Indication: ASTHMA
     Dosage: BID AND SOMETIMES ONLY ONCE A DAY
  15. NEXIUM [Concomitant]
     Active Substance: ESOMEPRAZOLE MAGNESIUM
     Indication: GASTROOESOPHAGEAL REFLUX DISEASE
  16. PREMARIN [Concomitant]
     Active Substance: ESTROGENS, CONJUGATED
     Indication: HORMONE REPLACEMENT THERAPY
  17. VOLTAREN [Concomitant]
     Active Substance: DICLOFENAC SODIUM
     Indication: ARTHROPATHY
     Dosage: DAILY
  18. HUMIRA [Suspect]
     Active Substance: ADALIMUMAB
     Route: 065
     Dates: start: 20140625
  19. PREDNISONE. [Suspect]
     Active Substance: PREDNISONE
     Indication: ARTHRALGIA
     Dosage: FOR TWO MONTHS
     Route: 065
     Dates: start: 20140501

REACTIONS (44)
  - Tooth infection [Recovering/Resolving]
  - Bone disorder [Unknown]
  - Arthralgia [Not Recovered/Not Resolved]
  - Rectal spasm [Unknown]
  - Injection site swelling [Not Recovered/Not Resolved]
  - Feeling abnormal [Not Recovered/Not Resolved]
  - Injection site discolouration [Unknown]
  - Diarrhoea [Recovered/Resolved]
  - Skin infection [Recovered/Resolved]
  - Tooth abscess [Not Recovered/Not Resolved]
  - Contusion [Unknown]
  - Peripheral swelling [Recovering/Resolving]
  - Injection site pain [Not Recovered/Not Resolved]
  - Diarrhoea [Unknown]
  - Pain [Unknown]
  - Gastrointestinal disorder [Not Recovered/Not Resolved]
  - Asthenia [Not Recovered/Not Resolved]
  - Haematochezia [Unknown]
  - Erythema [Recovered/Resolved]
  - Feeling hot [Recovered/Resolved]
  - Tooth disorder [Unknown]
  - Fatigue [Unknown]
  - Weight increased [Unknown]
  - Injection site warmth [Not Recovered/Not Resolved]
  - Drug ineffective [Unknown]
  - Drug ineffective [Unknown]
  - Back pain [Not Recovered/Not Resolved]
  - Dysuria [Recovered/Resolved]
  - Escherichia infection [Unknown]
  - Bladder disorder [Unknown]
  - Sensitivity of teeth [Not Recovered/Not Resolved]
  - Cystitis [Recovered/Resolved]
  - Vitamin D decreased [Unknown]
  - Swelling face [Recovered/Resolved]
  - Skin discolouration [Not Recovered/Not Resolved]
  - Haemorrhage subcutaneous [Not Recovered/Not Resolved]
  - Nausea [Not Recovered/Not Resolved]
  - Abdominal pain [Unknown]
  - Injection site rash [Unknown]
  - Abdominal pain [Not Recovered/Not Resolved]
  - Angiopathy [Unknown]
  - Injection site erythema [Not Recovered/Not Resolved]
  - Drug effect decreased [Not Recovered/Not Resolved]
  - Varicose vein [Unknown]

NARRATIVE: CASE EVENT DATE: 2014
